FAERS Safety Report 18565268 (Version 1)
Quarter: 2020Q4

REPORT INFORMATION
  Report Type: Spontaneous
  Country: PE (occurrence: IN)
  Receive Date: 20201201
  Receipt Date: 20201201
  Transmission Date: 20210114
  Serious: Yes (Other)
  Sender: FDA-Public Use
  Company Number: PE-MYLANLABS-2020M1099085

PATIENT
  Age: 20 Year
  Sex: Male
  Weight: 52 kg

DRUGS (1)
  1. FLUOROURACIL. [Suspect]
     Active Substance: FLUOROURACIL
     Indication: NASOPHARYNGEAL CANCER
     Dosage: 900 MILLIGRAM, 24 HOUR
     Route: 042

REACTIONS (1)
  - Bradycardia [Recovered/Resolved]
